FAERS Safety Report 8344496-1 (Version None)
Quarter: 2012Q2

REPORT INFORMATION
  Report Type: 
  Country: None (occurrence: None)
  Receive Date: 20120508
  Receipt Date: 20120502
  Transmission Date: 20120825
  Serious: Yes (Hospitalization)
  Sender: FDA-Public Use
  Company Number: PHHY2012IT038163

PATIENT
  Sex: Male

DRUGS (2)
  1. PREDNISONE TAB [Concomitant]
     Dosage: 75 MG, UNK
     Route: 048
     Dates: start: 20120306, end: 20120416
  2. ILARIS [Suspect]
     Dosage: 300 MG, UNK
     Route: 058
     Dates: start: 20090309, end: 20111122

REACTIONS (4)
  - LYMPHANGITIS [None]
  - OEDEMA PERIPHERAL [None]
  - ERYTHEMA [None]
  - LYMPHADENOPATHY [None]
